FAERS Safety Report 24063964 (Version 1)
Quarter: 2024Q3

REPORT INFORMATION
  Report Type: Spontaneous
  Country: BE (occurrence: BE)
  Receive Date: 20240709
  Receipt Date: 20240709
  Transmission Date: 20241017
  Serious: Yes (Hospitalization)
  Sender: CHEPLAPHARM
  Company Number: BE-EUROCEPT-EC20240101

PATIENT
  Age: 12 Year
  Sex: Male

DRUGS (2)
  1. OLANZAPINE [Suspect]
     Active Substance: OLANZAPINE
     Indication: Product used for unknown indication
     Dosage: IN THE MORNING AND THE EVENING; 1/2 DAY(S) ?DAILY DOSE: 5 MILLIGRAM
  2. LEVOMEPROMAZINE [Concomitant]
     Active Substance: LEVOMEPROMAZINE

REACTIONS (8)
  - Aggression [Unknown]
  - Defiant behaviour [Unknown]
  - Antisocial personality disorder [Unknown]
  - Anxiety [Unknown]
  - Incoherent [Unknown]
  - Weight increased [Unknown]
  - Amnesia [Unknown]
  - Off label use [Unknown]
